FAERS Safety Report 15124371 (Version 1)
Quarter: 2018Q3

REPORT INFORMATION
  Report Type: Spontaneous
  Country: US (occurrence: US)
  Receive Date: 20180613
  Receipt Date: 20180613
  Transmission Date: 20181010
  Serious: No
  Sender: FDA-Public Use
  Company Number: None

PATIENT
  Age: 33 Year
  Sex: Female

DRUGS (2)
  1. EMEND [Concomitant]
     Active Substance: APREPITANT
  2. FERAHEME [Suspect]
     Active Substance: FERUMOXYTOL NON-STOICHIOMETRIC MAGNETITE
     Indication: ANAEMIA
     Dosage: ?          QUANTITY:17 ML MILLILITRE(S);?
     Dates: start: 20180612, end: 20180612

REACTIONS (9)
  - Vomiting [None]
  - Myalgia [None]
  - Oxygen saturation decreased [None]
  - Vision blurred [None]
  - Flushing [None]
  - Headache [None]
  - Wheezing [None]
  - Cough [None]
  - Nausea [None]

NARRATIVE: CASE EVENT DATE: 20180612
